FAERS Safety Report 17186294 (Version 7)
Quarter: 2022Q3

REPORT INFORMATION
  Report Type: Spontaneous
  Country: FR (occurrence: FR)
  Receive Date: 20191220
  Receipt Date: 20220830
  Transmission Date: 20221026
  Serious: Yes (Other)
  Sender: FDA-Public Use
  Company Number: FR-JNJFOC-20191217840

PATIENT
  Age: 61 Year
  Sex: Female

DRUGS (11)
  1. PALIPERIDONE PALMITATE [Suspect]
     Active Substance: PALIPERIDONE PALMITATE
     Indication: Product used for unknown indication
     Route: 030
  2. PALIPERIDONE PALMITATE [Suspect]
     Active Substance: PALIPERIDONE PALMITATE
     Dosage: DAY 0
     Route: 030
     Dates: start: 20170315
  3. PALIPERIDONE PALMITATE [Suspect]
     Active Substance: PALIPERIDONE PALMITATE
     Route: 030
     Dates: start: 20170412
  4. PALIPERIDONE PALMITATE [Suspect]
     Active Substance: PALIPERIDONE PALMITATE
     Route: 030
     Dates: start: 20171019, end: 20180607
  5. PALIPERIDONE PALMITATE [Suspect]
     Active Substance: PALIPERIDONE PALMITATE
     Dosage: DAY 0
     Route: 030
     Dates: start: 20191003
  6. PALIPERIDONE PALMITATE [Suspect]
     Active Substance: PALIPERIDONE PALMITATE
     Dosage: DAY 8
     Route: 030
     Dates: start: 20191011
  7. PALIPERIDONE PALMITATE [Suspect]
     Active Substance: PALIPERIDONE PALMITATE
     Route: 030
     Dates: start: 20191108, end: 20191108
  8. PALIPERIDONE PALMITATE [Suspect]
     Active Substance: PALIPERIDONE PALMITATE
     Route: 030
     Dates: start: 20191205
  9. PALIPERIDONE PALMITATE [Suspect]
     Active Substance: PALIPERIDONE PALMITATE
     Route: 030
     Dates: start: 20200626
  10. CYAMEMAZINE [Suspect]
     Active Substance: CYAMEMAZINE
     Route: 065
     Dates: end: 20170328
  11. CYAMEMAZINE [Suspect]
     Active Substance: CYAMEMAZINE
     Route: 065
     Dates: start: 20170328, end: 20170529

REACTIONS (28)
  - Cataract [Not Recovered/Not Resolved]
  - Mental impairment [Recovered/Resolved]
  - Eyelid function disorder [Unknown]
  - Impatience [Not Recovered/Not Resolved]
  - White blood cell count increased [Unknown]
  - Off label use [Unknown]
  - Pain [Recovered/Resolved]
  - Eye discharge [Recovered/Resolved]
  - Vertigo positional [Recovered/Resolved]
  - Slow response to stimuli [Recovered/Resolved]
  - Psychiatric symptom [Recovered/Resolved]
  - Migraine [Unknown]
  - Blood pressure abnormal [Recovered/Resolved]
  - Language disorder [Recovering/Resolving]
  - Aggression [Recovered/Resolved]
  - Disturbance in attention [Unknown]
  - Asthenia [Recovered/Resolved]
  - Lacrimation increased [Recovered/Resolved]
  - Dry eye [Recovered/Resolved]
  - Akathisia [Recovered/Resolved]
  - Overdose [Unknown]
  - Insomnia [Not Recovered/Not Resolved]
  - Dizziness [Not Recovered/Not Resolved]
  - Refusal of treatment by patient [Unknown]
  - Headache [Unknown]
  - Dry mouth [Recovered/Resolved]
  - Musculoskeletal stiffness [Recovering/Resolving]
  - Hypertension [Unknown]

NARRATIVE: CASE EVENT DATE: 20170328
